FAERS Safety Report 8289224-3 (Version None)
Quarter: 2012Q2

REPORT INFORMATION
  Report Type: 
  Country: None (occurrence: None)
  Receive Date: 20120417
  Receipt Date: 20120411
  Transmission Date: 20120825
  Serious: Yes (Other)
  Sender: FDA-Public Use
  Company Number: PHEH2012US007758

PATIENT
  Sex: Female

DRUGS (5)
  1. GLEEVEC [Suspect]
  2. CALCIUM CARBONATE [Concomitant]
  3. LEXAPRO [Concomitant]
  4. SYNTHROID [Concomitant]
  5. M.V.I. [Concomitant]

REACTIONS (2)
  - NEOPLASM PROGRESSION [None]
  - FEELING ABNORMAL [None]
